FAERS Safety Report 6342055-3 (Version None)
Quarter: 2009Q4

REPORT INFORMATION
  Report Type: 
  Country: None (occurrence: None)
  Receive Date: 20090903
  Receipt Date: 20090805
  Transmission Date: 20100525
  Serious: Yes (Hospitalization)
  Sender: FDA-Public Use
  Company Number: 2009SP018021

PATIENT
  Sex: Female
  Weight: 0.7 kg

DRUGS (6)
  1. CELESTONE [Suspect]
     Indication: DRUG EXPOSURE DURING PREGNANCY
     Dosage: TRPL
     Route: 064
     Dates: start: 20080811, end: 20080811
  2. NORVASC [Suspect]
     Indication: ESSENTIAL HYPERTENSION
     Dosage: TRPL
     Route: 064
     Dates: start: 20080524
  3. TRANDATE [Suspect]
     Indication: ESSENTIAL HYPERTENSION
     Dosage: TRPL
     Route: 064
     Dates: start: 20080412, end: 20080523
  4. PENICILLIN G [Suspect]
     Indication: DRUG USE FOR UNKNOWN INDICATION
     Dosage: TRPL
     Route: 064
     Dates: start: 20080811
  5. ERYTHROMYCIN [Suspect]
     Indication: DRUG USE FOR UNKNOWN INDICATION
     Dosage: TRPL
     Route: 064
     Dates: start: 20080811
  6. GYNIPRAL [Concomitant]

REACTIONS (13)
  - ANAEMIA NEONATAL [None]
  - CAESAREAN SECTION [None]
  - CEREBRAL CYST [None]
  - HYPERBILIRUBINAEMIA NEONATAL [None]
  - HYPERNATRAEMIA [None]
  - HYPOKALAEMIA [None]
  - MATERNAL DRUGS AFFECTING FOETUS [None]
  - NEONATAL DISORDER [None]
  - NEONATAL HYPOTENSION [None]
  - NEONATAL RESPIRATORY DISTRESS SYNDROME [None]
  - NEONATAL RESPIRATORY FAILURE [None]
  - NEONATAL TACHYPNOEA [None]
  - PREMATURE BABY [None]
